FAERS Safety Report 4661530-0 (Version None)
Quarter: 2005Q2

REPORT INFORMATION
  Report Type: 
  Country: None (occurrence: None)
  Receive Date: 20050502
  Receipt Date: 20050106
  Transmission Date: 20051028
  Serious: Yes (Other)
  Sender: FDA-Public Use
  Company Number: 200510140US

PATIENT
  Age: 49 Year
  Sex: Male

DRUGS (4)
  1. KETEK [Suspect]
     Indication: BRONCHITIS
     Dosage: 400 (2 TABLETS MG QD PO
     Route: 048
     Dates: start: 20050102, end: 20050102
  2. KETEK [Suspect]
     Indication: SINUSITIS
     Dosage: 400 (2 TABLETS MG QD PO
     Route: 048
     Dates: start: 20050102, end: 20050102
  3. COUGH SYRUP NOS [Concomitant]
  4. DECONGESTANT NOS [Concomitant]

REACTIONS (5)
  - DYSPHAGIA [None]
  - DYSPNOEA [None]
  - HYPERSENSITIVITY [None]
  - THROAT TIGHTNESS [None]
  - URTICARIA GENERALISED [None]
